FAERS Safety Report 8431631-X (Version None)
Quarter: 2012Q2

REPORT INFORMATION
  Report Type: 
  Country: None (occurrence: None)
  Receive Date: 20120613
  Receipt Date: 20110719
  Transmission Date: 20120825
  Serious: No
  Sender: FDA-Public Use
  Company Number: US-GLAXOSMITHKLINE-A0937329A

PATIENT
  Age: 22 Year
  Sex: Male

DRUGS (2)
  1. METHADONE HCL [Concomitant]
  2. TREXIMET [Suspect]
     Indication: MIGRAINE
     Route: 048
     Dates: start: 20110101

REACTIONS (1)
  - DRUG SCREEN POSITIVE [None]
